FAERS Safety Report 11446859 (Version 1)
Quarter: 2015Q3

REPORT INFORMATION
  Report Type: Spontaneous
  Country: US (occurrence: US)
  Receive Date: 20150831
  Receipt Date: 20150831
  Transmission Date: 20151125
  Serious: No
  Sender: FDA-Public Use
  Company Number: US-ELI_LILLY_AND_COMPANY-US200811005507

PATIENT
  Age: 52 Year
  Sex: Female

DRUGS (3)
  1. ARMOUR THYROID [Concomitant]
     Active Substance: THYROID, PORCINE\THYROID, UNSPECIFIED
  2. CYMBALTA [Suspect]
     Active Substance: DULOXETINE HYDROCHLORIDE
     Indication: MAJOR DEPRESSION
     Dosage: 60 MG, DAILY (1/D)
  3. CLONAZEPAM. [Concomitant]
     Active Substance: CLONAZEPAM

REACTIONS (7)
  - Chest discomfort [Unknown]
  - Blood potassium increased [Unknown]
  - Crying [Unknown]
  - Hypertension [Unknown]
  - Panic attack [Unknown]
  - Drug ineffective [Unknown]
  - Palpitations [Unknown]

NARRATIVE: CASE EVENT DATE: 200810
